FAERS Safety Report 5764795-7 (Version None)
Quarter: 2008Q2

REPORT INFORMATION
  Report Type: 
  Country: None (occurrence: None)
  Receive Date: 20080609
  Receipt Date: 20080609
  Transmission Date: 20081010
  Serious: Yes (Hospitalization, Disabling)
  Sender: FDA-Public Use
  Company Number: None

PATIENT
  Age: 35 Year
  Sex: Female
  Weight: 90.7194 kg

DRUGS (2)
  1. THORAZINE [Suspect]
  2. DEPAKOTE [Suspect]

REACTIONS (4)
  - FACE OEDEMA [None]
  - HALLUCINATION, TACTILE [None]
  - ILL-DEFINED DISORDER [None]
  - URTICARIA [None]
